FAERS Safety Report 7911640-7 (Version None)
Quarter: 2011Q4

REPORT INFORMATION
  Report Type: 
  Country: None (occurrence: None)
  Receive Date: 20111114
  Receipt Date: 20111114
  Transmission Date: 20120403
  Serious: No
  Sender: FDA-Public Use
  Company Number: None

PATIENT
  Age: 60 Year
  Sex: Male
  Weight: 95.254 kg

DRUGS (1)
  1. OXYCODONE HCL [Suspect]
     Indication: ROTATOR CUFF REPAIR
     Dosage: 1-3 TABLETS -USED 2 ONLY-
     Dates: start: 20111103, end: 20111107

REACTIONS (4)
  - DYSPHAGIA [None]
  - OROPHARYNGEAL PAIN [None]
  - MOUTH ULCERATION [None]
  - THROAT IRRITATION [None]
